FAERS Safety Report 24726170 (Version 1)
Quarter: 2024Q4

REPORT INFORMATION
  Report Type: Spontaneous
  Country: US (occurrence: None)
  Receive Date: 20241211
  Receipt Date: 20241211
  Transmission Date: 20250114
  Serious: No
  Sender: Public
  Company Number: None

PATIENT
  Age: 52 Year
  Sex: Male
  Weight: 65 kg

DRUGS (1)
  1. ALTEPLASE [Suspect]
     Active Substance: ALTEPLASE
     Indication: Transient ischaemic attack
     Dosage: OTHER FREQUENCY : ONCE;?
     Route: 042
     Dates: start: 20230818, end: 20230818

REACTIONS (1)
  - Angioedema [None]

NARRATIVE: CASE EVENT DATE: 20230818
